FAERS Safety Report 24738602 (Version 3)
Quarter: 2025Q1

REPORT INFORMATION
  Report Type: Spontaneous
  Country: GB (occurrence: GB)
  Receive Date: 20241216
  Receipt Date: 20250124
  Transmission Date: 20250408
  Serious: Yes (Other)
  Sender: MYLAN
  Company Number: GB-MYLANLABS-2024M1109690

PATIENT
  Age: 33 Year
  Sex: Male

DRUGS (2)
  1. CLOZARIL [Suspect]
     Active Substance: CLOZAPINE
     Indication: Schizophrenia
     Dosage: 300 MILLIGRAM, QD (ONCE DAILY)
     Route: 048
     Dates: start: 20241030, end: 202412
  2. CLONAZEPAM [Concomitant]
     Active Substance: CLONAZEPAM
     Indication: Agitation
     Dosage: 500 MICROGRAM, QD (ONCE DAILY)
     Route: 048
     Dates: start: 202404

REACTIONS (5)
  - Eosinophilia [Recovered/Resolved]
  - Blood alkaline phosphatase increased [Recovering/Resolving]
  - White blood cell count decreased [Unknown]
  - Platelet count increased [Unknown]
  - Red blood cell sedimentation rate increased [Unknown]

NARRATIVE: CASE EVENT DATE: 20241203
